FAERS Safety Report 5016786-1 (Version None)
Quarter: 2006Q2

REPORT INFORMATION
  Report Type: 
  Country: None (occurrence: None)
  Receive Date: 20060602
  Receipt Date: 20051128
  Transmission Date: 20061013
  Serious: No
  Sender: FDA-Public Use
  Company Number: US-GLAXOSMITHKLINE-A0583696A

PATIENT
  Age: 49 Year
  Sex: Female

DRUGS (3)
  1. AUGMENTIN '125' [Suspect]
     Indication: BREAST ABSCESS
     Dosage: 2TAB TWICE PER DAY
     Route: 048
     Dates: start: 20051121, end: 20051125
  2. PRILOSEC [Concomitant]
  3. ZOLOFT [Concomitant]

REACTIONS (2)
  - SWOLLEN TONGUE [None]
  - TONGUE BLACK HAIRY [None]
